FAERS Safety Report 4556127-7 (Version None)
Quarter: 2005Q1

REPORT INFORMATION
  Report Type: 
  Country: None (occurrence: None)
  Receive Date: 20050119
  Receipt Date: 20050113
  Transmission Date: 20050727
  Serious: Yes (Hospitalization)
  Sender: FDA-Public Use
  Company Number: US-BRISTOL-MYERS SQUIBB COMPANY-12823894

PATIENT
  Age: 36 Year
  Sex: Female
  Weight: 100 kg

DRUGS (8)
  1. STADOL [Suspect]
     Indication: HEADACHE
     Route: 042
     Dates: start: 20050111, end: 20050111
  2. DEMEROL [Concomitant]
     Route: 042
  3. ZOFRAN [Concomitant]
     Route: 042
  4. PHENERGAN [Concomitant]
  5. TYLENOL [Concomitant]
     Route: 048
  6. VICODIN [Concomitant]
     Route: 048
  7. ZONEGRAN [Concomitant]
     Dosage: DURATION OF THERAPY:  4 TO 5 MONTHS.
     Route: 048
  8. EFFEXOR [Concomitant]
     Route: 048

REACTIONS (2)
  - HALLUCINATION [None]
  - MENTAL STATUS CHANGES [None]
